FAERS Safety Report 23883702 (Version 1)
Quarter: 2024Q2

REPORT INFORMATION
  Report Type: Spontaneous
  Country: US (occurrence: None)
  Receive Date: 20240521
  Receipt Date: 20240521
  Transmission Date: 20240716
  Serious: Yes (unspecified)
  Sender: FDA-Public Use
  Company Number: None

PATIENT
  Age: 48 Year
  Sex: Female

DRUGS (1)
  1. EPCLUSA [Suspect]
     Active Substance: SOFOSBUVIR\VELPATASVIR
     Indication: Hepatitis viral
     Dosage: OTHER QUANTITY : 400-100MG;?FREQUENCY : DAILY;?

REACTIONS (3)
  - Cough [None]
  - Dyspnoea [None]
  - Post-tussive vomiting [None]
